FAERS Safety Report 20851879 (Version 1)
Quarter: 2022Q2

REPORT INFORMATION
  Report Type: Spontaneous
  Country: GB (occurrence: GB)
  Receive Date: 20220520
  Receipt Date: 20220520
  Transmission Date: 20220720
  Serious: Yes (Other)
  Sender: FDA-Public Use
  Company Number: GB-MHRA-MIDB-187a18ab-9f61-4edc-ac39-94adda5947cc

PATIENT
  Sex: Female

DRUGS (1)
  1. CLARITHROMYCIN [Suspect]
     Active Substance: CLARITHROMYCIN
     Indication: Product used for unknown indication
     Dosage: 5 MILLILITER, TWO TIMES A DAY (INSTEAD OF 2.5ML)
     Route: 065

REACTIONS (1)
  - Epistaxis [Recovered/Resolved]
